FAERS Safety Report 8398711-9 (Version None)
Quarter: 2012Q2

REPORT INFORMATION
  Report Type: 
  Country: None (occurrence: None)
  Receive Date: 20120531
  Receipt Date: 20120529
  Transmission Date: 20120825
  Serious: Yes (Other)
  Sender: FDA-Public Use
  Company Number: BR-ROCHE-557739

PATIENT
  Sex: Male
  Weight: 64 kg

DRUGS (4)
  1. CLONAZEPAM [Suspect]
     Indication: ANXIETY
     Dosage: OTHER INDICATION: ANXIETY
     Route: 048
  2. APRAZ [Concomitant]
     Indication: ANXIETY
     Dosage: OTHER INDICATION: DEPRESSION.
     Route: 048
  3. CLONAZEPAM [Suspect]
     Indication: DEPRESSION
  4. CLONAZEPAM [Suspect]
     Indication: PANIC ATTACK
     Route: 048

REACTIONS (20)
  - PRURITUS [None]
  - HEART RATE INCREASED [None]
  - FEELING HOT [None]
  - ALOPECIA [None]
  - DRY MOUTH [None]
  - THIRST [None]
  - AMNESIA [None]
  - SALIVARY HYPERSECRETION [None]
  - FATIGUE [None]
  - CHEST PAIN [None]
  - MUSCULAR WEAKNESS [None]
  - INCREASED VISCOSITY OF BRONCHIAL SECRETION [None]
  - DRUG INEFFECTIVE [None]
  - TACHYCARDIA [None]
  - ERYTHEMA [None]
  - MITRAL VALVE PROLAPSE [None]
  - OCULAR HYPERAEMIA [None]
  - ABDOMINAL PAIN [None]
  - PALPITATIONS [None]
  - CARDIOVASCULAR DISORDER [None]
